FAERS Safety Report 13705141 (Version 1)
Quarter: 2017Q2

REPORT INFORMATION
  Report Type: Spontaneous
  Country: US (occurrence: US)
  Receive Date: 20170629
  Receipt Date: 20170629
  Transmission Date: 20170830
  Serious: Yes (Disabling, Other)
  Sender: FDA-Public Use
  Company Number: None

PATIENT
  Age: 27 Year
  Sex: Male
  Weight: 76.5 kg

DRUGS (1)
  1. CIPFLOXACIN [Suspect]
     Active Substance: CIPROFLOXACIN
     Indication: PROPHYLAXIS AGAINST DIARRHOEA
     Dosage: OTHER DOSE:MG;OTHER FREQUENCY:STAT;?
     Route: 048
     Dates: start: 20170622, end: 20170622

REACTIONS (4)
  - Feeling abnormal [None]
  - Hypoaesthesia [None]
  - Visual impairment [None]
  - Paraesthesia [None]

NARRATIVE: CASE EVENT DATE: 20170629
